FAERS Safety Report 10062952 (Version 1)
Quarter: 2014Q1

REPORT INFORMATION
  Report Type: Spontaneous
  Country: US (occurrence: None)
  Receive Date: 20140318
  Receipt Date: 20140318
  Transmission Date: 20141002
  Serious: Yes (Other)
  Sender: FDA-Public Use
  Company Number: 163-21660-13091467

PATIENT
  Age: 77 Year
  Sex: Male

DRUGS (1)
  1. ABRAXANE ( PACLITAXEL) (INJECTION) [Suspect]
     Indication: PROSTATE CANCER
     Dates: start: 201305

REACTIONS (3)
  - Local swelling [None]
  - Abasia [None]
  - Dysstasia [None]
